FAERS Safety Report 7665805-2 (Version None)
Quarter: 2011Q3

REPORT INFORMATION
  Report Type: 
  Country: None (occurrence: None)
  Receive Date: 20110806
  Receipt Date: 20110419
  Transmission Date: 20111222
  Serious: No
  Sender: FDA-Public Use
  Company Number: US-ABBOTT-11P-163-0720831-00

PATIENT
  Sex: Female

DRUGS (10)
  1. LIPITOR [Concomitant]
     Indication: BLOOD CHOLESTEROL INCREASED
  2. DIOVAN HCT [Concomitant]
     Indication: HYPERTENSION
  3. BONIVA [Concomitant]
     Indication: OSTEOPOROSIS
  4. ZOLOFT [Concomitant]
     Indication: DEPRESSION
  5. PLAVIX [Concomitant]
     Indication: THROMBOSIS
  6. PLAVIX [Concomitant]
     Indication: PROPHYLAXIS
  7. MOBIC [Concomitant]
     Indication: PAIN
  8. NIASPAN [Suspect]
     Indication: BLOOD CHOLESTEROL INCREASED
     Dates: start: 20110214
  9. ATIVAN [Concomitant]
     Indication: ANXIETY
  10. PRILOSEC [Concomitant]
     Indication: REFLUX GASTRITIS

REACTIONS (1)
  - RASH [None]
